FAERS Safety Report 7309183-7 (Version None)
Quarter: 2011Q1

REPORT INFORMATION
  Report Type: 
  Country: None (occurrence: None)
  Receive Date: 20110223
  Receipt Date: 20110215
  Transmission Date: 20110831
  Serious: Yes (Hospitalization)
  Sender: FDA-Public Use
  Company Number: US-JNJFOC-20110204832

PATIENT
  Sex: Male
  Weight: 86.18 kg

DRUGS (5)
  1. ASACOL [Concomitant]
     Indication: CROHN'S DISEASE
     Route: 048
  2. REMICADE [Suspect]
     Indication: CROHN'S DISEASE
     Route: 042
  3. PREVACID [Concomitant]
     Indication: CROHN'S DISEASE
     Route: 048
  4. CARAFATE [Concomitant]
     Indication: CROHN'S DISEASE
     Dosage: 1TBSP 1 HOUR BEFORE OR AFTER EACH MEAL
     Route: 048
  5. MIRALAX [Concomitant]
     Indication: CROHN'S DISEASE
     Route: 048

REACTIONS (4)
  - THERMAL BURN [None]
  - CROHN'S DISEASE [None]
  - BLISTER [None]
  - NEPHROLITHIASIS [None]
